FAERS Safety Report 15413377 (Version 1)
Quarter: 2018Q3

REPORT INFORMATION
  Report Type: Report from Study
  Country: CA (occurrence: CA)
  Receive Date: 20180921
  Receipt Date: 20180921
  Transmission Date: 20181010
  Serious: Yes (Hospitalization)
  Sender: FDA-Public Use
  Company Number: CA-JNJFOC-20180918399

PATIENT
  Age: 61 Year
  Sex: Female

DRUGS (1)
  1. SIMPONI [Suspect]
     Active Substance: GOLIMUMAB
     Indication: RHEUMATOID ARTHRITIS
     Dosage: STRENGTH = 50 MG
     Route: 058
     Dates: start: 20130111, end: 20180711

REACTIONS (3)
  - Bone cancer [Recovering/Resolving]
  - Lung neoplasm malignant [Recovering/Resolving]
  - Hepatic cancer [Recovering/Resolving]

NARRATIVE: CASE EVENT DATE: 20180701
